FAERS Safety Report 7913599-5 (Version None)
Quarter: 2011Q4

REPORT INFORMATION
  Report Type: 
  Country: None (occurrence: None)
  Receive Date: 20111115
  Receipt Date: 20111108
  Transmission Date: 20120403
  Serious: No
  Sender: FDA-Public Use
  Company Number: US-PFIZER INC-2011246697

PATIENT
  Sex: Female
  Weight: 95.23 kg

DRUGS (13)
  1. RHINOCORT [Concomitant]
     Dosage: 32 UG, 2X/DAY
  2. LOSARTAN [Concomitant]
     Indication: HYPERTENSION
     Dosage: 100 MG, DAILY
  3. FERROUS SULFATE TAB [Concomitant]
     Dosage: 325 MG, 2X/WEEK
     Route: 048
  4. SINGULAIR [Concomitant]
     Dosage: 10 MG, 1X/DAY
     Route: 048
  5. CALCIUM [Concomitant]
     Dosage: 500 MG, 1X/DAY
     Route: 048
  6. PROCARDIA XL [Concomitant]
     Dosage: 30 MG, 1X/DAY
     Route: 048
  7. EXEMESTANE [Suspect]
     Indication: BREAST CANCER
     Dosage: 25 MG, DAILY
     Route: 048
     Dates: start: 20110601
  8. NIFEDIPINE [Concomitant]
     Indication: HYPERTENSION
     Dosage: 20 MG, DAILY
  9. AVAPRO [Concomitant]
     Dosage: 150 MG, 1X/DAY
  10. RANITIDINE HYDROCHLORIDE [Concomitant]
     Dosage: 150 MG, AS NEEDED
     Route: 048
  11. VITAMIN B COMPLEX CAP [Concomitant]
     Dosage: UNK, 1X/DAY
     Route: 048
  12. VITAMIN D [Concomitant]
     Dosage: UNK, 2X/DAY
     Route: 048
  13. COZAAR [Concomitant]
     Dosage: 100 MG, 1X/DAY
     Route: 048

REACTIONS (30)
  - ALANINE AMINOTRANSFERASE INCREASED [None]
  - WEIGHT DECREASED [None]
  - NASAL CONGESTION [None]
  - CHEST DISCOMFORT [None]
  - DYSURIA [None]
  - ARTHRALGIA [None]
  - BONE PAIN [None]
  - ASPARTATE AMINOTRANSFERASE INCREASED [None]
  - BLOOD ALKALINE PHOSPHATASE INCREASED [None]
  - ALOPECIA [None]
  - ASTHENIA [None]
  - DRY EYE [None]
  - DYSPHONIA [None]
  - NIGHT SWEATS [None]
  - BALANCE DISORDER [None]
  - MEAN CELL VOLUME DECREASED [None]
  - VISION BLURRED [None]
  - HEARING IMPAIRED [None]
  - GAIT DISTURBANCE [None]
  - DIPLOPIA [None]
  - CONSTIPATION [None]
  - PRURITUS [None]
  - FATIGUE [None]
  - TINNITUS [None]
  - PLATELET COUNT INCREASED [None]
  - INSOMNIA [None]
  - DYSPEPSIA [None]
  - NOCTURIA [None]
  - HYPOAESTHESIA [None]
  - DRY SKIN [None]
